FAERS Safety Report 11025899 (Version 1)
Quarter: 2015Q2

REPORT INFORMATION
  Report Type: Other
  Country: GB (occurrence: GB)
  Receive Date: 20150414
  Receipt Date: 20150414
  Transmission Date: 20150821
  Serious: Yes (Other)
  Sender: FDA-Public Use
  Company Number: GB-MYLANLABS-2015M1010669

PATIENT

DRUGS (6)
  1. FLUTICASONE [Concomitant]
     Active Substance: FLUTICASONE\FLUTICASONE PROPIONATE
     Dosage: 2 DF, BID
     Route: 055
     Dates: start: 20131204
  2. SALBUTAMOL [Concomitant]
     Active Substance: ALBUTEROL
     Dosage: 2 DF, UNK
     Route: 055
     Dates: start: 20121012
  3. NAPROXEN. [Concomitant]
     Active Substance: NAPROXEN
     Dosage: 1 DF, UNK (1 TO BE TAKEN TWICE DAILY WHEN REQUIRED)
     Dates: start: 20150302
  4. COCODAMOL [Concomitant]
     Active Substance: ACETAMINOPHEN\CODEINE PHOSPHATE
     Dosage: UNK (1-2 TO BE TAKEN FOUR TIMES DAILY)
     Dates: start: 20150303, end: 20150317
  5. PIROXICAM. [Concomitant]
     Active Substance: PIROXICAM
     Dosage: UNK (APPLY AS DIRECTED)
     Dates: start: 20150217, end: 20150221
  6. IBUPROFEN. [Suspect]
     Active Substance: IBUPROFEN
     Dosage: UNK
     Dates: start: 20150303

REACTIONS (1)
  - Eye swelling [Recovered/Resolved]

NARRATIVE: CASE EVENT DATE: 20150323
